FAERS Safety Report 8567294-2 (Version None)
Quarter: 2012Q3

REPORT INFORMATION
  Report Type: 
  Country: None (occurrence: None)
  Receive Date: 20120730
  Receipt Date: 20120730
  Transmission Date: 20120928
  Serious: Yes (Other)
  Sender: FDA-Public Use
  Company Number: None

PATIENT
  Sex: Female
  Weight: 67.1324 kg

DRUGS (1)
  1. TERCONAZOLE [Suspect]
     Indication: FUNGAL INFECTION
     Dosage: ONCE DAILY AT BEDTIME, 3 DAYS, VAG
     Route: 067
     Dates: start: 20120727, end: 20120728

REACTIONS (7)
  - PYREXIA [None]
  - VOMITING [None]
  - CHILLS [None]
  - URTICARIA [None]
  - ARTHRALGIA [None]
  - PAIN [None]
  - RASH [None]
